FAERS Safety Report 5017083-0 (Version None)
Quarter: 2006Q2

REPORT INFORMATION
  Report Type: 
  Country: None (occurrence: None)
  Receive Date: 20060526
  Receipt Date: 20060510
  Transmission Date: 20061013
  Serious: Yes (Other)
  Sender: FDA-Public Use
  Company Number: US200603006659

PATIENT
  Age: 73 Year
  Sex: Female

DRUGS (2)
  1. EVISTA [Suspect]
     Dosage: 60 MG, ORAL
     Route: 048
     Dates: start: 19990301, end: 20060316
  2. PROVERA [Concomitant]

REACTIONS (4)
  - ADENOMYOSIS [None]
  - ENDOMETRIAL CANCER [None]
  - METASTASES TO UTERUS [None]
  - POSTMENOPAUSAL HAEMORRHAGE [None]
